APPROVED DRUG PRODUCT: SSD AF
Active Ingredient: SILVER SULFADIAZINE
Strength: 1%
Dosage Form/Route: CREAM;TOPICAL
Application: N018578 | Product #003
Applicant: DR REDDYS LABORATORIES INC
Approved: Jul 11, 1990 | RLD: No | RS: No | Type: DISCN